FAERS Safety Report 23314768 (Version 2)
Quarter: 2024Q1

REPORT INFORMATION
  Report Type: Spontaneous
  Country: GB (occurrence: GB)
  Receive Date: 20231219
  Receipt Date: 20240319
  Transmission Date: 20240410
  Serious: Yes (Hospitalization)
  Sender: FDA-Public Use
  Company Number: GB-MYLANLABS-2023M1134348

PATIENT
  Sex: Male

DRUGS (1)
  1. CLOZARIL [Suspect]
     Active Substance: CLOZAPINE
     Indication: Schizophrenia
     Dosage: UNK
     Route: 048
     Dates: start: 20060307, end: 20240310

REACTIONS (5)
  - Fall [Unknown]
  - Intervertebral disc protrusion [Unknown]
  - Malaise [Unknown]
  - Confusional state [Unknown]
  - Therapy interrupted [Unknown]
